FAERS Safety Report 5886665-6 (Version None)
Quarter: 2008Q3

REPORT INFORMATION
  Report Type: 
  Country: None (occurrence: None)
  Receive Date: 20080917
  Receipt Date: 20080910
  Transmission Date: 20090109
  Serious: Yes (Other)
  Sender: FDA-Public Use
  Company Number: PHHY2008JP21188

PATIENT
  Age: 69 Year
  Sex: Male

DRUGS (2)
  1. VOLTAREN [Suspect]
     Route: 048
  2. VOLTAREN [Suspect]
     Route: 054

REACTIONS (3)
  - BLOOD PRESSURE DECREASED [None]
  - DIZZINESS [None]
  - DIZZINESS POSTURAL [None]
